FAERS Safety Report 10750464 (Version 1)
Quarter: 2015Q1

REPORT INFORMATION
  Report Type: Spontaneous
  Country: ES (occurrence: ES)
  Receive Date: 20150130
  Receipt Date: 20150130
  Transmission Date: 20150721
  Serious: Yes (Other)
  Sender: FDA-Public Use
  Company Number: ES-CIPLA LTD.-2015ES00632

PATIENT

DRUGS (4)
  1. CETUXIMAB [Suspect]
     Active Substance: CETUXIMAB
     Indication: COLORECTAL CANCER METASTATIC
     Dosage: 400 MG/M2 ON DAY 1 OF CYCLE 1
  2. IRINOTECAN [Suspect]
     Active Substance: IRINOTECAN
     Indication: COLORECTAL CANCER METASTATIC
     Dosage: 180 MG/M2 (MAXIMUM BODY SURFACE AREA OF 2.0 M2)
  3. CETUXIMAB [Suspect]
     Active Substance: CETUXIMAB
     Dosage: 250 MG/M2 WEEKLY
  4. ABITUZUMAB [Suspect]
     Active Substance: ABITUZUMAB
     Indication: COLORECTAL CANCER METASTATIC
     Dosage: 1,000 MG EVERY 2 WEEKS
     Route: 042

REACTIONS (1)
  - Tachyarrhythmia [Unknown]
